FAERS Safety Report 5788872-X (Version None)
Quarter: 2008Q2

REPORT INFORMATION
  Report Type: 
  Country: None (occurrence: None)
  Receive Date: 20080626
  Receipt Date: 20071119
  Transmission Date: 20081010
  Serious: No
  Sender: FDA-Public Use
  Company Number: US-ASTRAZENECA-2007UW26663

PATIENT
  Age: 45 Year
  Sex: Male
  Weight: 78.9 kg

DRUGS (2)
  1. PULMICORT FLEXHALER [Suspect]
     Indication: ASTHMA
     Dosage: 180 MCG TWO INHALATIONS QD
     Route: 055
  2. VENTOLIN [Concomitant]

REACTIONS (3)
  - CHEST DISCOMFORT [None]
  - ILL-DEFINED DISORDER [None]
  - WHEEZING [None]
